FAERS Safety Report 9727137 (Version 2)
Quarter: 2013Q4

REPORT INFORMATION
  Report Type: Report from Study
  Country: BD (occurrence: BD)
  Receive Date: 20131203
  Receipt Date: 20131203
  Transmission Date: 20140711
  Serious: Yes (Death, Hospitalization)
  Sender: FDA-Public Use
  Company Number: PHHY2013BD136594

PATIENT
  Age: 79 Year
  Sex: Female

DRUGS (2)
  1. ACLASTA [Suspect]
     Indication: OSTEOPOROSIS
     Dosage: 5 MG IN 100 ML SOLUTION
     Route: 042
     Dates: start: 20100720
  2. ZOMETA [Concomitant]
     Dosage: 4 MG IN 100 ML SOLUTION
     Route: 042
     Dates: start: 201306, end: 201308

REACTIONS (5)
  - Electrolyte imbalance [Fatal]
  - Gastric cancer [Fatal]
  - Blood glucose increased [Unknown]
  - Hypertension [Unknown]
  - Malaise [Unknown]
